FAERS Safety Report 6157591-2 (Version None)
Quarter: 2009Q2

REPORT INFORMATION
  Report Type: 
  Country: None (occurrence: None)
  Receive Date: 20090416
  Receipt Date: 20090407
  Transmission Date: 20091009
  Serious: Yes (Hospitalization)
  Sender: FDA-Public Use
  Company Number: DE-WATSON-2009-01184

PATIENT
  Sex: Male

DRUGS (3)
  1. TRELSTAR LA [Suspect]
     Indication: PROSTATE CANCER
     Dosage: 11.25 MG, SINGLE INTO ABDOMEN
     Route: 065
     Dates: start: 20090209
  2. METFORMIN HCL [Concomitant]
     Indication: DRUG USE FOR UNKNOWN INDICATION
     Dosage: UNK
     Route: 065
  3. ENABETA [Concomitant]
     Indication: DRUG USE FOR UNKNOWN INDICATION
     Dosage: UNK
     Route: 065

REACTIONS (4)
  - ABDOMINAL PAIN UPPER [None]
  - CIRCULATORY COLLAPSE [None]
  - DRUG ADMINISTRATION ERROR [None]
  - SYNCOPE [None]
